FAERS Safety Report 4956460-0 (Version None)
Quarter: 2006Q1

REPORT INFORMATION
  Report Type: 
  Country: None (occurrence: None)
  Receive Date: 20060328
  Receipt Date: 20060328
  Transmission Date: 20060701
  Serious: Yes (Other)
  Sender: FDA-Public Use
  Company Number: None

PATIENT
  Sex: Female

DRUGS (2)
  1. LITHIUM CARBONATE [Suspect]
     Dosage: 300MG   PO  2 BID
     Route: 048
  2. NAPROXEN SODIUM [Suspect]
     Dosage: 275MG  PO  ONCE  BID
     Route: 048

REACTIONS (4)
  - DIZZINESS [None]
  - DRUG INTERACTION [None]
  - FATIGUE [None]
  - NAUSEA [None]
